FAERS Safety Report 7541142-1 (Version None)
Quarter: 2011Q2

REPORT INFORMATION
  Report Type: 
  Country: None (occurrence: None)
  Receive Date: 20110610
  Receipt Date: 20110606
  Transmission Date: 20111010
  Serious: Yes (Life-Threatening, Other)
  Sender: FDA-Public Use
  Company Number: GR-GENENTECH-320052

PATIENT
  Age: 78 Year
  Sex: Male

DRUGS (2)
  1. HEPARIN [Concomitant]
     Indication: PROPHYLAXIS
     Dosage: 3500 IU, UNK
  2. ALTEPLASE [Suspect]
     Indication: PLEURAL EFFUSION

REACTIONS (2)
  - HAEMOTHORAX [None]
  - HYPOVOLAEMIA [None]
